FAERS Safety Report 10874570 (Version 1)
Quarter: 2015Q1

REPORT INFORMATION
  Report Type: Spontaneous
  Country: US (occurrence: US)
  Receive Date: 20150227
  Receipt Date: 20150227
  Transmission Date: 20150721
  Serious: No
  Sender: FDA-Public Use
  Company Number: US-GLAXOSMITHKLINE-US2015012614

PATIENT
  Age: 67 Year
  Sex: Male

DRUGS (14)
  1. DOXEPIN [Concomitant]
     Active Substance: DOXEPIN
  2. VENLAFAXINE [Concomitant]
     Active Substance: VENLAFAXINE HYDROCHLORIDE
  3. CELECOXIB. [Concomitant]
     Active Substance: CELECOXIB
  4. CLONAZEPAM. [Concomitant]
     Active Substance: CLONAZEPAM
  5. OXYCODONE [Concomitant]
     Active Substance: OXYCODONE
  6. GLIPIZIDE. [Concomitant]
     Active Substance: GLIPIZIDE
  7. AMITRIPTYLIN [Suspect]
     Active Substance: AMITRIPTYLINE
     Indication: PRODUCT USED FOR UNKNOWN INDICATION
     Dosage: 10 MG, U
     Dates: end: 201501
  8. PRAVASTATIN [Concomitant]
     Active Substance: PRAVASTATIN\PRAVASTATIN SODIUM
  9. TIZANIDINE (TIZANIDINE) [Concomitant]
     Active Substance: TIZANIDINE
  10. BREO ELLIPTA [Suspect]
     Active Substance: FLUTICASONE FUROATE\VILANTEROL TRIFENATATE
     Indication: CHRONIC OBSTRUCTIVE PULMONARY DISEASE
     Dosage: 1 PUFF(S), U
     Route: 055
     Dates: start: 201501
  11. GABAPENTIN. [Concomitant]
     Active Substance: GABAPENTIN
  12. ZIPRASIDONE [Concomitant]
     Active Substance: ZIPRASIDONE
  13. LOSARTAN [Concomitant]
     Active Substance: LOSARTAN
  14. TAMSULOSIN [Concomitant]
     Active Substance: TAMSULOSIN

REACTIONS (3)
  - Fatigue [Not Recovered/Not Resolved]
  - Malaise [Not Recovered/Not Resolved]
  - Dyspnoea [Not Recovered/Not Resolved]

NARRATIVE: CASE EVENT DATE: 201501
